FAERS Safety Report 10230966 (Version 2)
Quarter: 2014Q4

REPORT INFORMATION
  Report Type: Spontaneous
  Country: JP (occurrence: JP)
  Receive Date: 20140611
  Receipt Date: 20141006
  Transmission Date: 20150528
  Serious: No
  Sender: FDA-Public Use
  Company Number: JP-PFIZER INC-2014155946

PATIENT
  Age: 16 Year
  Sex: Female

DRUGS (4)
  1. ARBEKACIN SULFATE [Concomitant]
     Active Substance: ARBEKACIN SULFATE
  2. WYSTAL [Concomitant]
  3. VFEND [Suspect]
     Active Substance: VORICONAZOLE
     Indication: FUNGAL INFECTION
     Route: 042
  4. CIPROXAN [Concomitant]
     Active Substance: CIPROFLOXACIN

REACTIONS (1)
  - Hypoaesthesia [Recovered/Resolved]

NARRATIVE: CASE EVENT DATE: 20140606
